FAERS Safety Report 17324365 (Version 1)
Quarter: 2020Q1

REPORT INFORMATION
  Report Type: Spontaneous
  Country: US (occurrence: US)
  Receive Date: 20200124
  Receipt Date: 20200124
  Transmission Date: 20200409
  Serious: Yes (Death)
  Sender: FDA-Public Use
  Company Number: None

PATIENT
  Age: 43 Year
  Sex: Female

DRUGS (2)
  1. EVEROLIMUS 5 MG [Suspect]
     Active Substance: EVEROLIMUS
  2. EXEMESTANE 25 MG TABLETS [Suspect]
     Active Substance: EXEMESTANE

REACTIONS (1)
  - Death [None]

NARRATIVE: CASE EVENT DATE: 20200112
